FAERS Safety Report 7561949-4 (Version None)
Quarter: 2011Q2

REPORT INFORMATION
  Report Type: 
  Country: None (occurrence: None)
  Receive Date: 20110621
  Receipt Date: 20110615
  Transmission Date: 20111010
  Serious: Yes (Hospitalization)
  Sender: FDA-Public Use
  Company Number: US-MERCK-1106USA01996

PATIENT
  Age: 63 Year
  Sex: Female

DRUGS (5)
  1. ALLEGRA [Concomitant]
     Route: 065
  2. ZETIA [Concomitant]
     Route: 065
  3. COZAAR [Suspect]
     Route: 048
     Dates: start: 20090101, end: 20090701
  4. LIPITOR [Concomitant]
     Route: 065
  5. FLONASE [Concomitant]
     Route: 065

REACTIONS (4)
  - ALOPECIA [None]
  - ANGIOEDEMA [None]
  - ERYTHROMELALGIA [None]
  - AMAUROSIS FUGAX [None]
